FAERS Safety Report 6475300-4 (Version None)
Quarter: 2009Q4

REPORT INFORMATION
  Report Type: 
  Country: None (occurrence: None)
  Receive Date: 20091204
  Receipt Date: 20090504
  Transmission Date: 20100525
  Serious: Yes (Other)
  Sender: FDA-Public Use
  Company Number: CZ-ELI_LILLY_AND_COMPANY-CZ200904001891

PATIENT
  Age: 33 Year
  Sex: Male

DRUGS (3)
  1. CIALIS [Suspect]
     Indication: ERECTILE DYSFUNCTION
     Dosage: 20 MG, OTHER
     Route: 048
     Dates: end: 20090301
  2. CIALIS [Suspect]
     Dosage: 20 MG, DAILY (1/D)
     Route: 048
     Dates: start: 20090401
  3. CIALIS [Suspect]
     Dosage: 10 MG, WEEKLY (1/W)
     Route: 051
     Dates: start: 20090101

REACTIONS (2)
  - INTERVERTEBRAL DISC DEGENERATION [None]
  - TINNITUS [None]
